FAERS Safety Report 8158631-1 (Version None)
Quarter: 2012Q1

REPORT INFORMATION
  Report Type: 
  Country: None (occurrence: None)
  Receive Date: 20120223
  Receipt Date: 20120215
  Transmission Date: 20120608
  Serious: Yes (Life-Threatening, Hospitalization, Disabling)
  Sender: FDA-Public Use
  Company Number: US-BAYER-2011-038388

PATIENT
  Age: 44 Year
  Sex: Female
  Weight: 73.469 kg

DRUGS (20)
  1. MEDROL [Concomitant]
     Dosage: UNK
     Dates: start: 20050304, end: 20050308
  2. QUERCETIN [Concomitant]
  3. NIACIN [Concomitant]
  4. ZITHROMAX [Concomitant]
     Dosage: UNK
     Dates: start: 20041202
  5. PREDNISONE [Concomitant]
     Dosage: UNK
     Dates: start: 20050104, end: 20050104
  6. BIOFLAVONOIDS [BIOFLAVONOIDS NOS] [Concomitant]
  7. ZYRTEC [Concomitant]
     Dosage: UNK UNK, BID
  8. GINKGO BILOBA [Concomitant]
  9. YASMIN [Suspect]
     Indication: CONTRACEPTION
     Dosage: UNK
     Dates: start: 20050101, end: 20090101
  10. DROSPIRENONE AND ETHINYL ESTRADIOL [Suspect]
     Indication: MENSTRUAL CYCLE MANAGEMENT
  11. IBUPROFEN [Concomitant]
     Dosage: 800 MG, UNK
  12. VICODIN [Concomitant]
  13. E.E.S. [Concomitant]
     Dosage: UNK UNK, QID
  14. WELLBUTRIN [Concomitant]
     Dosage: 150 MG, UNK
     Dates: start: 20050222
  15. YASMIN [Suspect]
     Indication: MENSTRUAL CYCLE MANAGEMENT
  16. DROSPIRENONE AND ETHINYL ESTRADIOL [Suspect]
     Indication: CONTRACEPTION
     Dosage: UNK
     Dates: start: 20050101, end: 20090101
  17. NASONEX [Concomitant]
     Dosage: UNK
     Dates: start: 20050304
  18. ORTHO-NOVUM 1/50 21 [Concomitant]
     Dosage: UNK
     Dates: start: 20050101
  19. MOTRIN [Concomitant]
  20. YASMIN [Suspect]

REACTIONS (18)
  - JUGULAR VEIN THROMBOSIS [None]
  - PAIN [None]
  - OEDEMA PERIPHERAL [None]
  - STRESS [None]
  - INTRACRANIAL VENOUS SINUS THROMBOSIS [None]
  - THROMBOSIS [None]
  - VENOUS INSUFFICIENCY [None]
  - SWELLING [None]
  - ANXIETY [None]
  - BACK PAIN [None]
  - SENSATION OF HEAVINESS [None]
  - MUSCLE SPASMS [None]
  - MIDDLE INSOMNIA [None]
  - DEPRESSION [None]
  - INJURY [None]
  - HEADACHE [None]
  - APHASIA [None]
  - FATIGUE [None]
